FAERS Safety Report 10108577 (Version 3)
Quarter: 2014Q2

REPORT INFORMATION
  Report Type: Report from Study
  Country: AU (occurrence: AU)
  Receive Date: 20140425
  Receipt Date: 20140516
  Transmission Date: 20141212
  Serious: Yes (Hospitalization)
  Sender: FDA-Public Use
  Company Number: AU-ROCHE-1217063

PATIENT
  Age: 58 Year
  Sex: Male

DRUGS (3)
  1. RANIBIZUMAB [Suspect]
     Indication: AGE-RELATED MACULAR DEGENERATION
     Route: 050
     Dates: start: 20120223
  2. RANIBIZUMAB [Suspect]
     Route: 050
     Dates: start: 20121018
  3. RANIBIZUMAB [Suspect]
     Dosage: LAST DOSE BEFORE SAE
     Route: 050
     Dates: start: 20121205

REACTIONS (2)
  - Retinal detachment [Recovered/Resolved]
  - Retinal tear [Unknown]
